FAERS Safety Report 7136072-3 (Version None)
Quarter: 2010Q4

REPORT INFORMATION
  Report Type: 
  Country: None (occurrence: None)
  Receive Date: 20101204
  Receipt Date: 20101102
  Transmission Date: 20110411
  Serious: No
  Sender: FDA-Public Use
  Company Number: US-BAYER-201022040NA

PATIENT
  Sex: Female
  Weight: 111.36 kg

DRUGS (22)
  1. ULTRAVIST 300 [Suspect]
     Indication: OVARIAN CANCER
     Dosage: 1ML/SEC INTO UNSPECIFIED SITE, WARMER AND POWER INJECTOR
     Route: 042
     Dates: start: 20100422, end: 20100422
  2. ULTRAVIST 300 [Suspect]
     Indication: COMPUTERISED TOMOGRAM ABDOMEN
     Dosage: 1.0 ML/SEC INTO LEFT ANTECUBITAL USING POWER INJECTOR
     Route: 042
     Dates: start: 20100607, end: 20100607
  3. ULTRAVIST 300 [Suspect]
     Dosage: 0.8ML/SEC INTO LEFT ANTECUBITAL, POWER INJECTOR AND WARMER
     Route: 042
     Dates: start: 20100929, end: 20100929
  4. ULTRAVIST 300 [Suspect]
     Dosage: 1.0 ML/SEC INTO RIGHT ANTECUBITAL, POWER INJECTOR AND WARMER
     Route: 042
     Dates: start: 20101102, end: 20101102
  5. BENADRYL [Concomitant]
  6. BENADRYL [Concomitant]
     Route: 048
     Dates: start: 20100607, end: 20100607
  7. BENADRYL [Concomitant]
     Dates: start: 20100929, end: 20100929
  8. BENADRYL [Concomitant]
     Dosage: 50 MG, ONCE
     Route: 048
     Dates: start: 20101102, end: 20101102
  9. READI-CAT [Concomitant]
     Route: 048
     Dates: start: 20100422, end: 20100422
  10. READI-CAT [Concomitant]
     Dosage: UNK, ONCE
     Route: 048
     Dates: start: 20101102, end: 20101102
  11. PREDNISONE [Concomitant]
     Dosage: DOSE: 12 HRS BEFORE SCAN
     Route: 048
  12. PREDNISONE [Concomitant]
     Dosage: PREMEDICATED  BEFORE SCAN
     Dates: start: 20100928, end: 20100928
  13. PREDNISONE [Concomitant]
     Dosage: PREMEDICATED BEFORE SCAN
     Dates: start: 20100929, end: 20100929
  14. PREDNISONE [Concomitant]
     Dosage: PREMEDICATED BEFORE SCAN
     Route: 048
  15. HUMALOG [Concomitant]
  16. EFFEXOR [Concomitant]
  17. LANTUS [Concomitant]
  18. SYNTHROID [Concomitant]
  19. LIPITOR [Concomitant]
  20. DIOVAN [Concomitant]
  21. ZYRTEC [Concomitant]
  22. EFFEXOR XR [Concomitant]

REACTIONS (6)
  - COUGH [None]
  - INFUSION RELATED REACTION [None]
  - NASAL CONGESTION [None]
  - PRURITUS [None]
  - RHINORRHOEA [None]
  - THROAT IRRITATION [None]
